FAERS Safety Report 8327881-3 (Version None)
Quarter: 2012Q2

REPORT INFORMATION
  Report Type: 
  Country: None (occurrence: None)
  Receive Date: 20120502
  Receipt Date: 20120418
  Transmission Date: 20120825
  Serious: Yes (Hospitalization)
  Sender: FDA-Public Use
  Company Number: CN-JNJFOC-20120414157

PATIENT
  Sex: Female

DRUGS (2)
  1. TOPIRAMATE [Suspect]
     Indication: EPILEPSY
     Route: 048
     Dates: start: 20110520, end: 20110622
  2. CARBAMAZEPINE [Suspect]
     Indication: EPILEPSY
     Route: 065
     Dates: start: 20110520

REACTIONS (6)
  - MEMORY IMPAIRMENT [None]
  - DEPRESSED LEVEL OF CONSCIOUSNESS [None]
  - MENTAL DISORDER [None]
  - COGNITIVE DISORDER [None]
  - APHASIA [None]
  - FATIGUE [None]
